FAERS Safety Report 6712782-4 (Version None)
Quarter: 2010Q2

REPORT INFORMATION
  Report Type: 
  Country: None (occurrence: None)
  Receive Date: 20100506
  Receipt Date: 20100427
  Transmission Date: 20101027
  Serious: Yes (Disabling)
  Sender: FDA-Public Use
  Company Number: CH-ASTRAZENECA-2010SE19012

PATIENT
  Age: 74 Year
  Sex: Male

DRUGS (9)
  1. NEXIUM [Suspect]
     Route: 048
     Dates: start: 20100201
  2. CELLCEPT [Interacting]
     Indication: MYASTHENIA GRAVIS
     Route: 065
  3. MESTINON [Concomitant]
     Indication: MYASTHENIA GRAVIS
     Route: 048
  4. AMARYL [Concomitant]
     Route: 048
  5. PRETERAX [Concomitant]
     Route: 048
  6. EZETIMIBE/SIMVASTATIN [Concomitant]
     Route: 048
  7. PROSCAR [Concomitant]
     Route: 048
     Dates: start: 20100201, end: 20100312
  8. TORADOL [Concomitant]
     Route: 048
     Dates: start: 20100201
  9. BONIVA [Concomitant]
     Route: 048
     Dates: start: 20100201

REACTIONS (6)
  - DIPLOPIA [None]
  - DRUG INTERACTION [None]
  - EYELID PTOSIS [None]
  - JOINT STIFFNESS [None]
  - VISION BLURRED [None]
  - VISUAL FIELD DEFECT [None]
